FAERS Safety Report 4537370-X (Version None)
Quarter: 2004Q4

REPORT INFORMATION
  Report Type: 
  Country: None (occurrence: None)
  Receive Date: 20041223
  Receipt Date: 20030617
  Transmission Date: 20050328
  Serious: Yes (Life-Threatening, Hospitalization)
  Sender: FDA-Public Use
  Company Number: DE-ABBOTT-03P-062-0222153-00

PATIENT
  Sex: Male
  Weight: 90 kg

DRUGS (7)
  1. KLACID I.V. [Suspect]
     Indication: PNEUMONIA
     Dates: start: 20030611, end: 20030614
  2. KLACID FORTE TABLETS [Suspect]
     Indication: PNEUMONIA
     Route: 048
     Dates: start: 20030614
  3. HEPARIN-FRACTION, SODIUM SALT [Concomitant]
     Indication: THROMBOSIS PROPHYLAXIS
     Route: 058
     Dates: start: 20030608, end: 20030611
  4. HEPARIN [Concomitant]
     Indication: THROMBOSIS PROPHYLAXIS
     Dosage: 9800 - 51000 IU
     Route: 042
     Dates: start: 20030613
  5. COMBAREN [Concomitant]
     Indication: PAIN
     Route: 048
     Dates: start: 20030608, end: 20030611
  6. NOVALGIN TROPFEN [Concomitant]
     Indication: PAIN
     Dosage: 120 - 160 DROPS
     Route: 048
     Dates: start: 20030608, end: 20030611
  7. PIRITRAMIDE [Concomitant]
     Indication: PAIN
     Dosage: 7.5 - 15 MG
     Route: 050
     Dates: start: 20030609, end: 20030610

REACTIONS (3)
  - DEEP VEIN THROMBOSIS [None]
  - PULMONARY EMBOLISM [None]
  - TACHYCARDIA [None]
